FAERS Safety Report 19196321 (Version 1)
Quarter: 2021Q2

REPORT INFORMATION
  Report Type: Spontaneous
  Country: ZA (occurrence: ZA)
  Receive Date: 20210429
  Receipt Date: 20210429
  Transmission Date: 20210717
  Serious: Yes (Other)
  Sender: FDA-Public Use
  Company Number: ZA-NOVOPROD-805966

PATIENT
  Age: 68 Year
  Sex: Female

DRUGS (5)
  1. TREPILINE [AMITRIPTYLINE HYDROCHLORIDE] [Concomitant]
     Active Substance: AMITRIPTYLINE HYDROCHLORIDE
     Indication: DEPRESSION
     Dosage: 25 MG
     Route: 048
  2. ESTROFEM (ESTRADIOL HEMIHYDRATE) [Suspect]
     Active Substance: ESTRADIOL HEMIHYDRATE
     Indication: HORMONE REPLACEMENT THERAPY
     Dosage: 1 MG
     Route: 048
  3. ATIVAN [Concomitant]
     Active Substance: LORAZEPAM
     Indication: ANXIETY
     Dosage: 1 MG
     Route: 048
  4. ELTROXIN [Concomitant]
     Active Substance: LEVOTHYROXINE
     Indication: THYROID DISORDER
     Dosage: 100 ???G
     Route: 048
  5. IRBEWIN [Concomitant]
     Active Substance: IRBESARTAN
     Indication: HYPERTENSION
     Dosage: 300 MG
     Route: 048

REACTIONS (1)
  - Hip arthroplasty [Unknown]
